FAERS Safety Report 5703837-1 (Version None)
Quarter: 2008Q2

REPORT INFORMATION
  Report Type: 
  Country: None (occurrence: None)
  Receive Date: 20080414
  Receipt Date: 20080314
  Transmission Date: 20081010
  Serious: No
  Sender: FDA-Public Use
  Company Number: PR-BAYER-200818041NA

PATIENT
  Age: 56 Year
  Sex: Female

DRUGS (3)
  1. AVELOX [Suspect]
     Indication: CHRONIC OBSTRUCTIVE PULMONARY DISEASE
     Route: 048
  2. ADVAIR HFA [Concomitant]
  3. SINGULAIR [Concomitant]

REACTIONS (2)
  - DIZZINESS [None]
  - VOMITING [None]
